FAERS Safety Report 8272963-8 (Version None)
Quarter: 2012Q2

REPORT INFORMATION
  Report Type: 
  Country: None (occurrence: None)
  Receive Date: 20120411
  Receipt Date: 20120330
  Transmission Date: 20120825
  Serious: Yes (Other)
  Sender: FDA-Public Use
  Company Number: CA-JNJFOC-20120400210

PATIENT
  Sex: Female
  Weight: 85 kg

DRUGS (2)
  1. REMICADE [Suspect]
     Indication: CROHN'S DISEASE
     Route: 042
     Dates: start: 20110101
  2. REMICADE [Suspect]
     Route: 042
     Dates: start: 20120330

REACTIONS (8)
  - DIZZINESS [None]
  - PALLOR [None]
  - NAUSEA [None]
  - ASTHENIA [None]
  - ABDOMINAL PAIN [None]
  - INFUSION RELATED REACTION [None]
  - COLD SWEAT [None]
  - TREMOR [None]
